FAERS Safety Report 26069098 (Version 1)
Quarter: 2025Q4

REPORT INFORMATION
  Report Type: Spontaneous
  Country: US (occurrence: None)
  Receive Date: 20251119
  Receipt Date: 20251119
  Transmission Date: 20260118
  Serious: Yes (Hospitalization)
  Sender: FDA-CTU
  Company Number: None

PATIENT
  Age: 21 Year
  Sex: Female

DRUGS (1)
  1. WEZLANA [Suspect]
     Active Substance: USTEKINUMAB-AUUB
     Indication: Colitis ulcerative
     Dosage: 90MG EVERY 8 WEEKS ?

REACTIONS (3)
  - Malaise [None]
  - Colitis ulcerative [None]
  - Condition aggravated [None]
